FAERS Safety Report 7465715-X (Version None)
Quarter: 2011Q2

REPORT INFORMATION
  Report Type: 
  Country: None (occurrence: None)
  Receive Date: 20110509
  Receipt Date: 20110427
  Transmission Date: 20111010
  Serious: Yes (Other)
  Sender: FDA-Public Use
  Company Number: B0717328A

PATIENT
  Sex: Female

DRUGS (2)
  1. XELODA [Concomitant]
     Indication: PRODUCT USED FOR UNKNOWN INDICATION
     Route: 048
     Dates: start: 20110112, end: 20110126
  2. LAPATINIB [Suspect]
     Indication: PRODUCT USED FOR UNKNOWN INDICATION
     Route: 065
     Dates: start: 20110124, end: 20110201

REACTIONS (3)
  - GRANULOMA [None]
  - SKIN ULCER [None]
  - SKIN TOXICITY [None]
